FAERS Safety Report 5018971-1 (Version None)
Quarter: 2006Q2

REPORT INFORMATION
  Report Type: 
  Country: None (occurrence: None)
  Receive Date: 20060531
  Receipt Date: 20060518
  Transmission Date: 20061013
  Serious: Yes (Hospitalization)
  Sender: FDA-Public Use
  Company Number: 200611179BWH

PATIENT
  Age: 62 Year
  Sex: Male
  Weight: 70.0807 kg

DRUGS (14)
  1. SORAFENIB [Suspect]
     Indication: METASTATIC RENAL CELL CARCINOMA
     Dosage: 400 MG, BID, ORAL
     Route: 048
     Dates: start: 20051011, end: 20060506
  2. SORAFENIB [Suspect]
     Dosage: 400 MG, BID, ORAL
     Route: 048
     Dates: start: 20060509
  3. PROTONIX [Concomitant]
  4. ASACOL [Concomitant]
  5. CENTRUM VITAMIN [Concomitant]
  6. NORVASC [Concomitant]
  7. HYDROCHLOROTHIAZIDE [Concomitant]
  8. KETOCONAZOLE [Concomitant]
  9. MOTRIN [Concomitant]
  10. VICODIN [Concomitant]
  11. LIPITOR [Concomitant]
  12. LISINOPRIL [Concomitant]
  13. CORTISONE ACETATE TAB [Concomitant]
  14. GOLD BOND [Concomitant]

REACTIONS (15)
  - ALOPECIA [None]
  - ASTHENIA [None]
  - BLOOD CHOLESTEROL INCREASED [None]
  - BLOOD PRESSURE INCREASED [None]
  - CATHETER RELATED COMPLICATION [None]
  - CONDITION AGGRAVATED [None]
  - DIARRHOEA [None]
  - DRY SKIN [None]
  - FATIGUE [None]
  - GASTROOESOPHAGEAL REFLUX DISEASE [None]
  - HYPOTENSION [None]
  - IMPAIRED HEALING [None]
  - PERICARDIAL EFFUSION [None]
  - SKIN DISORDER [None]
  - SKIN EXFOLIATION [None]
